FAERS Safety Report 9798611 (Version 1)
Quarter: 2014Q1

REPORT INFORMATION
  Report Type: Spontaneous
  Country: US (occurrence: US)
  Receive Date: 20140106
  Receipt Date: 20140106
  Transmission Date: 20141002
  Serious: Yes (Other)
  Sender: FDA-Public Use
  Company Number: US-BAYER-2014-002046

PATIENT
  Sex: Female

DRUGS (2)
  1. YAZ [Suspect]
  2. YASMIN [Suspect]

REACTIONS (3)
  - Cerebrovascular accident [None]
  - Pain [None]
  - Injury [None]
